FAERS Safety Report 5635081-0 (Version None)
Quarter: 2008Q1

REPORT INFORMATION
  Report Type: 
  Country: None (occurrence: None)
  Receive Date: 20080222
  Receipt Date: 20080219
  Transmission Date: 20080703
  Serious: No
  Sender: FDA-Public Use
  Company Number: US-BAXTER-2008BH001513

PATIENT
  Age: 52 Year
  Sex: Male
  Weight: 83 kg

DRUGS (1)
  1. HEPARIN SODIUM [Suspect]
     Indication: PHOTOPHERESIS
     Dosage: DOSE UNIT:UNKNOWN
     Route: 040

REACTIONS (2)
  - BLOOD PRESSURE DECREASED [None]
  - DIZZINESS [None]
